FAERS Safety Report 8119720-0 (Version None)
Quarter: 2012Q1

REPORT INFORMATION
  Report Type: 
  Country: None (occurrence: None)
  Receive Date: 20120207
  Receipt Date: 20120131
  Transmission Date: 20120608
  Serious: Yes (Other)
  Sender: FDA-Public Use
  Company Number: GR-ASTRAZENECA-2012SE07004

PATIENT
  Sex: Female

DRUGS (1)
  1. SEROQUEL XR [Suspect]
     Indication: DEMENTIA
     Route: 048

REACTIONS (2)
  - CEREBROVASCULAR ACCIDENT [None]
  - OFF LABEL USE [None]
